FAERS Safety Report 25188811 (Version 1)
Quarter: 2025Q2

REPORT INFORMATION
  Report Type: Spontaneous
  Country: FR (occurrence: FR)
  Receive Date: 20250411
  Receipt Date: 20250411
  Transmission Date: 20250716
  Serious: Yes (Hospitalization)
  Sender: AUROBINDO
  Company Number: FR-AFSSAPS-DJ2025000444

PATIENT
  Age: 77 Year
  Sex: Female
  Weight: 45.3 kg

DRUGS (1)
  1. MIDODRINE [Suspect]
     Active Substance: MIDODRINE
     Indication: Hypotension
     Dosage: 5 MILLIGRAM, ONCE A DAY (2.5MGX2/DAY)
     Route: 048
     Dates: start: 20241206

REACTIONS (2)
  - Raynaud^s phenomenon [Not Recovered/Not Resolved]
  - Contraindicated product prescribed [Not Recovered/Not Resolved]

NARRATIVE: CASE EVENT DATE: 20241206
